FAERS Safety Report 19019931 (Version 2)
Quarter: 2021Q1

REPORT INFORMATION
  Report Type: Report from Study
  Country: CO (occurrence: CO)
  Receive Date: 20210313
  Receipt Date: 20210319
  Transmission Date: 20210420
  Serious: Yes (Other)
  Sender: FDA-Public Use
  Company Number: NVSC2020CO290345

PATIENT
  Sex: Female

DRUGS (1)
  1. AFINITOR [Suspect]
     Active Substance: EVEROLIMUS
     Indication: BREAST CANCER
     Dosage: UNK
     Route: 048

REACTIONS (12)
  - Neoplasm malignant [Unknown]
  - Metastases to skin [Unknown]
  - Bone pain [Unknown]
  - Metastases to bone [Unknown]
  - Malaise [Unknown]
  - Eye oedema [Unknown]
  - Face oedema [Unknown]
  - Skin disorder [Unknown]
  - Blepharitis [Unknown]
  - Anxiety [Unknown]
  - Rash [Unknown]
  - Drug ineffective [Unknown]
